FAERS Safety Report 16266012 (Version 1)
Quarter: 2019Q2

REPORT INFORMATION
  Report Type: Spontaneous
  Country: PL (occurrence: PL)
  Receive Date: 20190502
  Receipt Date: 20190502
  Transmission Date: 20190711
  Serious: Yes (Other)
  Sender: FDA-Public Use
  Company Number: PL-ABBVIE-19K-129-2761731-00

PATIENT
  Sex: Male

DRUGS (1)
  1. VENETOCLAX. [Suspect]
     Active Substance: VENETOCLAX
     Indication: CHRONIC LYMPHOCYTIC LEUKAEMIA
     Route: 048

REACTIONS (5)
  - Haptoglobin decreased [Unknown]
  - Haemolysis [Unknown]
  - Blood bilirubin increased [Unknown]
  - Reticulocytosis [Unknown]
  - Hepatotoxicity [Unknown]
